FAERS Safety Report 4565099-0 (Version None)
Quarter: 2005Q1

REPORT INFORMATION
  Report Type: 
  Country: None (occurrence: None)
  Receive Date: 20050131
  Receipt Date: 20050118
  Transmission Date: 20050727
  Serious: Yes (Hospitalization)
  Sender: FDA-Public Use
  Company Number: FR-NOVOPROD-241771

PATIENT
  Age: 73 Year
  Sex: Male
  Weight: 115 kg

DRUGS (5)
  1. ACTRAPID [Suspect]
     Indication: ILL-DEFINED DISORDER
  2. ACUPAN [Concomitant]
     Route: 042
  3. TRIATEC [Concomitant]
     Dosage: 1.25 MG, UNK
     Route: 048
     Dates: start: 20041021
  4. PRAVASTATIN [Concomitant]
     Dosage: 40 MG, UNK
     Route: 048
  5. HEPARIN [Concomitant]
     Dosage: UNK, UNK
     Route: 042
     Dates: start: 20041021

REACTIONS (2)
  - THROMBOCYTOPENIA [None]
  - THROMBOPHLEBITIS [None]
